FAERS Safety Report 13007123 (Version 2)
Quarter: 2017Q1

REPORT INFORMATION
  Report Type: Spontaneous
  Country: US (occurrence: US)
  Receive Date: 20161207
  Receipt Date: 20170104
  Transmission Date: 20170428
  Serious: Yes (Other)
  Sender: FDA-Public Use
  Company Number: US-TEVA-697862USA

PATIENT
  Sex: Female
  Weight: 79.38 kg

DRUGS (21)
  1. PREDNISONE. [Suspect]
     Active Substance: PREDNISONE
     Dosage: 40 MILLIGRAM DAILY;
     Dates: start: 20160913
  2. FOLIC ACID. [Concomitant]
     Active Substance: FOLIC ACID
  3. SULFASALAZINE EC [Concomitant]
     Active Substance: SULFASALAZINE
     Dosage: 4 TABLETS IN A.M. 3 TABLETS IN P.M.
     Dates: start: 20130307
  4. SULFASALAZINE EC [Concomitant]
     Active Substance: SULFASALAZINE
     Dosage: 2000 MILLIGRAM DAILY;
     Dates: start: 20131002
  5. VOLTAREN [Concomitant]
     Active Substance: DICLOFENAC SODIUM
     Dates: start: 20131002
  6. MONTELUKAST [Concomitant]
     Active Substance: MONTELUKAST SODIUM
     Dates: start: 201601
  7. ALBUTEROL. [Concomitant]
     Active Substance: ALBUTEROL
  8. PULMICORT TURBUHALER [Concomitant]
     Active Substance: BUDESONIDE
  9. PREDNISONE. [Suspect]
     Active Substance: PREDNISONE
     Dosage: 40 MILLIGRAM DAILY;
     Dates: start: 20160912
  10. PREDNISONE. [Suspect]
     Active Substance: PREDNISONE
     Dosage: 20 MILLIGRAM DAILY;
     Dates: start: 20160912
  11. VITAMIN D [Concomitant]
     Active Substance: CHOLECALCIFEROL
  12. SULFASALAZINE EC [Concomitant]
     Active Substance: SULFASALAZINE
     Dosage: 1500 MILLIGRAM DAILY;
     Dates: start: 20100519
  13. VITAMIN C [Concomitant]
     Active Substance: ASCORBIC ACID
  14. XELJANZ [Suspect]
     Active Substance: TOFACITINIB CITRATE
     Indication: RHEUMATOID ARTHRITIS
     Dosage: 10 MILLIGRAM DAILY;
     Dates: start: 201503
  15. SULFASALAZINE EC [Concomitant]
     Active Substance: SULFASALAZINE
     Dosage: 1000 MILLIGRAM DAILY;
     Dates: start: 20091229
  16. PRILOSEC [Concomitant]
     Active Substance: OMEPRAZOLE MAGNESIUM
  17. XELJANZ [Suspect]
     Active Substance: TOFACITINIB CITRATE
     Dosage: 11 MILLIGRAM DAILY;
     Dates: start: 20160927
  18. RESTASIS [Concomitant]
     Active Substance: CYCLOSPORINE
     Dates: start: 201104
  19. CENTRUM SILVER [Concomitant]
     Active Substance: MINERALS\VITAMINS
  20. CITRACAL CALCIUM [Concomitant]
  21. PREDNISONE. [Suspect]
     Active Substance: PREDNISONE
     Indication: RHEUMATOID ARTHRITIS
     Dates: start: 20160909

REACTIONS (7)
  - Pain in extremity [Unknown]
  - Back pain [Unknown]
  - Rheumatoid arthritis [Recovering/Resolving]
  - Drug ineffective [Not Recovered/Not Resolved]
  - Peripheral swelling [Unknown]
  - Neck pain [Unknown]
  - Arthralgia [Unknown]

NARRATIVE: CASE EVENT DATE: 2016
